FAERS Safety Report 6386574-2 (Version None)
Quarter: 2009Q4

REPORT INFORMATION
  Report Type: 
  Country: None (occurrence: None)
  Receive Date: 20091002
  Receipt Date: 20090401
  Transmission Date: 20100525
  Serious: No
  Sender: FDA-Public Use
  Company Number: US-ASTRAZENECA-2009UW08320

PATIENT
  Sex: Female
  Weight: 75.7 kg

DRUGS (1)
  1. ARIMIDEX [Suspect]
     Indication: BREAST CANCER
     Route: 048
     Dates: start: 20080901, end: 20090301

REACTIONS (4)
  - ARTHRALGIA [None]
  - HOT FLUSH [None]
  - MUSCULOSKELETAL PAIN [None]
  - SWELLING [None]
